FAERS Safety Report 13048216 (Version 2)
Quarter: 2017Q1

REPORT INFORMATION
  Report Type: Report from Study
  Country: None (occurrence: FR)
  Receive Date: 20161220
  Receipt Date: 20170328
  Transmission Date: 20170428
  Serious: Yes (Death, Other)
  Sender: FDA-Public Use
  Company Number: FR-ABBVIE-16P-056-1816335-00

PATIENT
  Age: 65 Year
  Sex: Male

DRUGS (4)
  1. FLECAINIDE [Concomitant]
     Active Substance: FLECAINIDE
     Indication: CARDIAC FLUTTER
  2. COUMADINE [Concomitant]
     Active Substance: WARFARIN SODIUM
     Indication: CARDIAC FLUTTER
  3. ZESTORETIC [Concomitant]
     Active Substance: HYDROCHLOROTHIAZIDE\LISINOPRIL
     Indication: HYPERTENSION
  4. VENETOCLAX [Suspect]
     Active Substance: VENETOCLAX
     Indication: CHRONIC LYMPHOCYTIC LEUKAEMIA
     Route: 048
     Dates: start: 20160927, end: 20161025

REACTIONS (4)
  - Chronic lymphocytic leukaemia [Fatal]
  - Drug ineffective [Fatal]
  - Treatment failure [Not Recovered/Not Resolved]
  - Richter^s syndrome [Fatal]

NARRATIVE: CASE EVENT DATE: 2016
